FAERS Safety Report 8171932-6 (Version None)
Quarter: 2012Q1

REPORT INFORMATION
  Report Type: 
  Country: None (occurrence: None)
  Receive Date: 20120228
  Receipt Date: 20120226
  Transmission Date: 20120608
  Serious: Yes (Other)
  Sender: FDA-Public Use
  Company Number: IL-ROCHE-1043415

PATIENT
  Sex: Male

DRUGS (4)
  1. IRINOTECAN HCL [Suspect]
     Indication: COLON CANCER METASTATIC
  2. LEUCOVORIN CALCIUM [Suspect]
     Indication: COLON CANCER METASTATIC
  3. AVASTIN [Suspect]
     Indication: COLON CANCER METASTATIC
     Route: 042
  4. FLUOROURACIL [Suspect]
     Indication: COLON CANCER METASTATIC

REACTIONS (1)
  - RETINAL DETACHMENT [None]
